FAERS Safety Report 22217241 (Version 4)
Quarter: 2024Q1

REPORT INFORMATION
  Report Type: Spontaneous
  Country: PL (occurrence: PL)
  Receive Date: 20230417
  Receipt Date: 20240329
  Transmission Date: 20240410
  Serious: Yes (Other)
  Sender: FDA-Public Use
  Company Number: PL-LESVI-2022002920

PATIENT
  Age: 48 Year
  Sex: Male

DRUGS (11)
  1. ARIPIPRAZOLE [Suspect]
     Active Substance: ARIPIPRAZOLE
     Indication: Mania
     Dosage: 15 MILLIGRAM, DAILY
     Route: 065
  2. ARIPIPRAZOLE [Suspect]
     Active Substance: ARIPIPRAZOLE
     Indication: Hypomania
     Dosage: 30 MILLIGRAM, DAILY
     Route: 065
  3. QUETIAPINE [Suspect]
     Active Substance: QUETIAPINE
     Indication: Hypomania
     Dosage: 100 MILLIGRAM, ONCE A DAY (HIMSELF REDUCED THE DOSE OF QUETIAPINE TO 100 MG/24 H)
     Route: 065
  4. QUETIAPINE [Suspect]
     Active Substance: QUETIAPINE
     Indication: Mania
     Dosage: 300 MILLIGRAM, ONCE A DAY (LAST 2 YEARS)
     Route: 065
  5. QUETIAPINE [Suspect]
     Active Substance: QUETIAPINE
     Indication: Depression
     Dosage: 400 MILLIGRAM, ONCE A DAY,INCREASED GRADUALLY TO 400 MG/24H
     Route: 065
  6. QUETIAPINE [Suspect]
     Active Substance: QUETIAPINE
     Indication: Mental disorder
     Dosage: 200 MILLIGRAM, ONCE A DAY (GRADUALLY REPLACE, 200 MILLIGRAM, QD E (200 MG/24 H))
     Route: 065
  7. VALPROATE [Suspect]
     Active Substance: VALPROIC ACID
     Indication: Mental disorder
     Dosage: 2000 MILLIGRAM, ONCE A DAY (LAST 2 YEARS)
     Route: 065
  8. VALPROATE [Suspect]
     Active Substance: VALPROIC ACID
     Indication: Mania
  9. VALPROATE [Suspect]
     Active Substance: VALPROIC ACID
     Indication: Hypomania
  10. ARIPIPRAZOLE [Concomitant]
     Active Substance: ARIPIPRAZOLE
     Indication: Mania
     Dosage: 30 MILLIGRAM, ONCE A DAY
     Route: 065
  11. ARIPIPRAZOLE [Concomitant]
     Active Substance: ARIPIPRAZOLE
     Indication: Hypomania
     Dosage: 15 MILLIGRAM, ONCE A DAY
     Route: 065

REACTIONS (13)
  - Sedation complication [Recovered/Resolved]
  - Somnolence [Recovered/Resolved]
  - Poor quality sleep [Recovering/Resolving]
  - Irritability [Recovered/Resolved]
  - Lethargy [Recovered/Resolved]
  - Insomnia [Recovered/Resolved]
  - Sedation [Recovered/Resolved]
  - Sleep disorder [Recovered/Resolved]
  - Impaired quality of life [Unknown]
  - Wrong technique in product usage process [Unknown]
  - Underdose [Unknown]
  - Intentional product use issue [Unknown]
  - Inappropriate schedule of product discontinuation [Unknown]
